FAERS Safety Report 9184757 (Version 4)
Quarter: 2013Q3

REPORT INFORMATION
  Report Type: Spontaneous
  Country: US (occurrence: US)
  Receive Date: 20130325
  Receipt Date: 20130719
  Transmission Date: 20140515
  Serious: Yes (Hospitalization, Other)
  Sender: FDA-Public Use
  Company Number: US-TARO-2013P1003414

PATIENT
  Age: 14 Year
  Sex: Female
  Weight: 59.88 kg

DRUGS (1)
  1. PLACEBO [Suspect]
     Indication: ACNE
     Route: 061
     Dates: start: 20121220

REACTIONS (1)
  - Appendicitis [Recovered/Resolved]
